APPROVED DRUG PRODUCT: GABAPENTIN
Active Ingredient: GABAPENTIN
Strength: 400MG
Dosage Form/Route: CAPSULE;ORAL
Application: A075350 | Product #003 | TE Code: AB
Applicant: ACTAVIS ELIZABETH LLC
Approved: Sep 12, 2003 | RLD: No | RS: No | Type: RX